FAERS Safety Report 9772570 (Version 1)
Quarter: 2013Q4

REPORT INFORMATION
  Report Type: Spontaneous
  Country: US (occurrence: US)
  Receive Date: 20131219
  Receipt Date: 20131219
  Transmission Date: 20140711
  Serious: Yes (Hospitalization)
  Sender: FDA-Public Use
  Company Number: PHHY2013US145458

PATIENT
  Age: 18 Month
  Sex: Male

DRUGS (6)
  1. LIDOCAINE [Suspect]
     Indication: DERMATITIS DIAPER
     Route: 061
  2. IMIPRAMINE [Suspect]
     Indication: DERMATITIS DIAPER
  3. CLONIDINE [Suspect]
     Indication: DERMATITIS DIAPER
  4. KETAMINE [Suspect]
     Indication: DERMATITIS DIAPER
  5. GABAPENTIN [Suspect]
     Indication: DERMATITIS DIAPER
  6. MEFENAMIC ACID [Suspect]
     Indication: DERMATITIS DIAPER

REACTIONS (9)
  - Sinus bradycardia [Recovered/Resolved]
  - Respiratory distress [Recovered/Resolved]
  - Dyspnoea [Recovered/Resolved]
  - Blood pressure decreased [Recovered/Resolved]
  - Miosis [Recovered/Resolved]
  - Unresponsive to stimuli [Recovered/Resolved]
  - Hyporeflexia [Recovered/Resolved]
  - Toxicity to various agents [Recovered/Resolved]
  - Drug administration error [Unknown]
